FAERS Safety Report 8206898-3 (Version None)
Quarter: 2012Q1

REPORT INFORMATION
  Report Type: 
  Country: None (occurrence: None)
  Receive Date: 20120306
  Receipt Date: 20120228
  Transmission Date: 20120608
  Serious: Yes (Other)
  Sender: FDA-Public Use
  Company Number: 2011028029

PATIENT
  Age: 11 Year
  Sex: Male

DRUGS (3)
  1. PRIVIGEN [Suspect]
     Indication: KAWASAKI'S DISEASE
     Dosage: 1.85 G/KG INTRAVENOUS (NOT OTHERWISE SPECIFIED)
     Route: 042
     Dates: start: 20110325
  2. CEFUROXIME [Concomitant]
  3. ASPIRIN [Concomitant]

REACTIONS (7)
  - CYTOMEGALOVIRUS TEST POSITIVE [None]
  - HEPATITIS B SURFACE ANTIBODY POSITIVE [None]
  - TRANSMISSION OF AN INFECTIOUS AGENT VIA A MEDICINAL PRODUCT [None]
  - HEPATITIS B E ANTIBODY POSITIVE [None]
  - TRANSAMINASES INCREASED [None]
  - HEPATITIS B CORE ANTIBODY POSITIVE [None]
  - ANTINUCLEAR ANTIBODY POSITIVE [None]
